FAERS Safety Report 13164411 (Version 7)
Quarter: 2019Q2

REPORT INFORMATION
  Report Type: Spontaneous
  Country: US (occurrence: US)
  Receive Date: 20170130
  Receipt Date: 20190405
  Transmission Date: 20190711
  Serious: Yes (Hospitalization, Other)
  Sender: FDA-Public Use
  Company Number: US-DSJP-DSU-2016-130070

PATIENT

DRUGS (2)
  1. BENICAR [Suspect]
     Active Substance: OLMESARTAN MEDOXOMIL
     Indication: HYPERTENSION
     Dosage: 20 MG, QD
     Route: 048
     Dates: start: 20100316, end: 201410
  2. VICODIN [Concomitant]
     Active Substance: ACETAMINOPHEN\HYDROCODONE BITARTRATE
     Indication: PRODUCT USED FOR UNKNOWN INDICATION
     Dosage: 750 MG, ONCE EVERY 8HR
     Route: 048

REACTIONS (11)
  - Hiatus hernia [Not Recovered/Not Resolved]
  - Gastritis haemorrhagic [Unknown]
  - Incisional hernia [Unknown]
  - Wound infection [Unknown]
  - Haemorrhoids [Unknown]
  - Intestinal obstruction [Recovered/Resolved]
  - Sprue-like enteropathy [Recovering/Resolving]
  - Ileus [Recovered/Resolved]
  - Crohn^s disease [Recovering/Resolving]
  - Gastrooesophageal reflux disease [Not Recovered/Not Resolved]
  - Anxiety [Unknown]

NARRATIVE: CASE EVENT DATE: 20100706
